FAERS Safety Report 5263027-6 (Version None)
Quarter: 2007Q1

REPORT INFORMATION
  Report Type: 
  Country: None (occurrence: None)
  Receive Date: 20070312
  Receipt Date: 20070228
  Transmission Date: 20070707
  Serious: Yes (Other)
  Sender: FDA-Public Use
  Company Number: US-PFIZER INC-2007016678

PATIENT
  Sex: Female

DRUGS (8)
  1. CHANTIX [Suspect]
     Indication: EX-SMOKER
  2. RISPERDAL [Suspect]
     Indication: SCHIZOAFFECTIVE DISORDER
  3. GABAPENTIN [Concomitant]
     Dosage: DAILY DOSE:400MG
  4. CYMBALTA [Concomitant]
     Dosage: DAILY DOSE:60MG
  5. NORVASC [Concomitant]
  6. CHLORZOXAZONE [Concomitant]
  7. DARVON [Concomitant]
  8. TRAMADOL HCL [Concomitant]

REACTIONS (6)
  - EXCESSIVE EYE BLINKING [None]
  - HYPERPHAGIA [None]
  - MUSCLE TIGHTNESS [None]
  - MUSCLE TWITCHING [None]
  - NERVOUSNESS [None]
  - WEIGHT INCREASED [None]
